FAERS Safety Report 20664021 (Version 1)
Quarter: 2022Q2

REPORT INFORMATION
  Report Type: Spontaneous
  Country: QA (occurrence: QA)
  Receive Date: 20220401
  Receipt Date: 20220401
  Transmission Date: 20220721
  Serious: Yes (Life-Threatening, Hospitalization)
  Sender: FDA-Public Use
  Company Number: QA-LUPIN PHARMACEUTICALS INC.-2022-04396

PATIENT
  Age: 45 Year
  Sex: Male

DRUGS (17)
  1. ALBUTEROL SULFATE [Suspect]
     Active Substance: ALBUTEROL SULFATE
     Indication: Metabolic acidosis
     Dosage: UNK
     Route: 065
  2. ALBUTEROL SULFATE [Suspect]
     Active Substance: ALBUTEROL SULFATE
     Indication: Hyperkalaemia
  3. CALCIUM [Suspect]
     Active Substance: CALCIUM
     Indication: Metabolic acidosis
     Dosage: UNK, CALCIUM CHLORIDE
     Route: 065
  4. CALCIUM [Suspect]
     Active Substance: CALCIUM
     Indication: Hyperkalaemia
  5. SODIUM BICARBONATE [Suspect]
     Active Substance: SODIUM BICARBONATE
     Indication: Metabolic acidosis
     Dosage: UNK
     Route: 065
  6. SODIUM BICARBONATE [Suspect]
     Active Substance: SODIUM BICARBONATE
     Indication: Hyperkalaemia
  7. DEXTROSE [Suspect]
     Active Substance: DEXTROSE
     Indication: Metabolic acidosis
     Dosage: UNK
     Route: 065
  8. DEXTROSE [Suspect]
     Active Substance: DEXTROSE
     Indication: Hyperkalaemia
  9. INSULIN NOS [Suspect]
     Active Substance: INSULIN NOS
     Indication: Metabolic acidosis
     Dosage: UNK
     Route: 065
  10. INSULIN NOS [Suspect]
     Active Substance: INSULIN NOS
     Indication: Hyperkalaemia
  11. EPINEPHRINE [Concomitant]
     Active Substance: EPINEPHRINE
     Indication: Positive cardiac inotropic effect
     Dosage: 0.01 MICROGRAM/KILOGRAM
     Route: 065
     Dates: start: 202110
  12. EPINEPHRINE [Concomitant]
     Active Substance: EPINEPHRINE
     Dosage: 0.1 MICROGRAM/KILOGRAM
     Route: 065
  13. ISOPROTERENOL [Concomitant]
     Active Substance: ISOPROTERENOL
     Indication: Positive cardiac inotropic effect
     Dosage: 4 MICROGRAM
     Route: 065
     Dates: start: 202110
  14. ATROPINE [Concomitant]
     Active Substance: ATROPINE
     Indication: Bradycardia
     Dosage: UNK, 2 DOSES OF 0.5 MG ATROPINE INTRAVENOUSLY
     Route: 042
  15. ALTEPLASE [Concomitant]
     Active Substance: ALTEPLASE
     Indication: Thrombolysis
     Dosage: 15 MG (ADMINISTERED IN EMERGENCY DEPARTMENT TO ATTEMPT TO THROMBOLYSIS)
     Route: 065
  16. ALTEPLASE [Concomitant]
     Active Substance: ALTEPLASE
     Dosage: 5 MG (ADMINISTERED DURING CATHETER GUIDED THROMBOLYSIS)
     Route: 065
  17. HEPARIN [Concomitant]
     Active Substance: HEPARIN SODIUM
     Indication: Anticoagulant therapy
     Dosage: UNK
     Route: 065

REACTIONS (2)
  - Drug ineffective for unapproved indication [Unknown]
  - Off label use [Unknown]
